FAERS Safety Report 20145788 (Version 1)
Quarter: 2021Q4

REPORT INFORMATION
  Report Type: Spontaneous
  Country: BR (occurrence: BR)
  Receive Date: 20211203
  Receipt Date: 20211203
  Transmission Date: 20220303
  Serious: Yes (Other)
  Sender: FDA-Public Use
  Company Number: BR-AMNEAL PHARMACEUTICALS-2021-AMRX-04765

PATIENT
  Age: 54 Year
  Sex: Female

DRUGS (2)
  1. ACYCLOVIR [Suspect]
     Active Substance: ACYCLOVIR
     Indication: Herpes zoster
     Dosage: 200 MILLIGRAM, EVERY 6HR, 14 DAYS
     Route: 065
  2. TAMOXIFEN [Concomitant]
     Active Substance: TAMOXIFEN
     Indication: Hormone therapy
     Dosage: 20 MILLIGRAM, DAILY
     Route: 065

REACTIONS (2)
  - Radiation skin injury [Recovering/Resolving]
  - Recall phenomenon [Recovering/Resolving]
